FAERS Safety Report 7579301-4 (Version None)
Quarter: 2011Q2

REPORT INFORMATION
  Report Type: 
  Country: None (occurrence: None)
  Receive Date: 20110628
  Receipt Date: 20110616
  Transmission Date: 20111010
  Serious: Yes (Hospitalization, Other)
  Sender: FDA-Public Use
  Company Number: US-BAYER-2011-052761

PATIENT
  Age: 83 Year
  Sex: Male
  Weight: 70.295 kg

DRUGS (7)
  1. LISINOPRIL [Concomitant]
  2. TAMSULOSIN HCL [Concomitant]
  3. ASPIRIN [Concomitant]
     Indication: ISCHAEMIC HEART DISEASE PROPHYLAXIS
  4. PLAVIX [Concomitant]
  5. ALEVE (CAPLET) [Suspect]
     Indication: ARTHRITIS
     Dosage: 1 DF, BID
     Route: 048
     Dates: start: 20110527, end: 20110603
  6. MULTI-VITAMIN [Concomitant]
  7. ROSUVASTATIN [Concomitant]

REACTIONS (4)
  - ASTHENIA [None]
  - ABDOMINAL PAIN UPPER [None]
  - CONSTIPATION [None]
  - SMALL INTESTINAL OBSTRUCTION [None]
